FAERS Safety Report 7665256-0 (Version None)
Quarter: 2011Q3

REPORT INFORMATION
  Report Type: 
  Country: None (occurrence: None)
  Receive Date: 20110806
  Receipt Date: 20110224
  Transmission Date: 20111222
  Serious: No
  Sender: FDA-Public Use
  Company Number: US-ABBOTT-11P-163-0707477-00

PATIENT
  Sex: Male

DRUGS (4)
  1. UNKNOWN MEDICATION [Concomitant]
     Indication: GASTROOESOPHAGEAL REFLUX DISEASE
  2. ASPIRIN [Concomitant]
     Indication: PRODUCT USED FOR UNKNOWN INDICATION
     Dosage: 30 MINUTES BEFORE NIASPAN
  3. NIASPAN [Suspect]
     Indication: BLOOD CHOLESTEROL INCREASED
     Dosage: DAILY AT BEDTIME
     Dates: start: 20110221
  4. UNKNOWN MEDICATION [Concomitant]
     Indication: HYPERTENSION

REACTIONS (4)
  - DIZZINESS [None]
  - FEELING ABNORMAL [None]
  - FLUSHING [None]
  - HYPERHIDROSIS [None]
